FAERS Safety Report 7546185-X (Version None)
Quarter: 2011Q2

REPORT INFORMATION
  Report Type: 
  Country: None (occurrence: None)
  Receive Date: 20110614
  Receipt Date: 20031119
  Transmission Date: 20111010
  Serious: Yes (Other)
  Sender: FDA-Public Use
  Company Number: PHFR2003GB04106

PATIENT
  Sex: Male

DRUGS (2)
  1. CLOZAPINE [Suspect]
     Indication: SCHIZOPHRENIA
     Dosage: 600 MG, QD
     Route: 048
     Dates: start: 20010814
  2. HEPARIN [Concomitant]
     Route: 065

REACTIONS (2)
  - HAEMOGLOBIN INCREASED [None]
  - MEAN CELL VOLUME ABNORMAL [None]
